FAERS Safety Report 14949088 (Version 3)
Quarter: 2019Q3

REPORT INFORMATION
  Report Type: Spontaneous
  Country: US (occurrence: US)
  Receive Date: 20180529
  Receipt Date: 20190815
  Transmission Date: 20191004
  Serious: Yes (Other)
  Sender: FDA-Public Use
  Company Number: US-SA-2018SA137897

PATIENT
  Age: 49 Year
  Sex: Female
  Weight: 103 kg

DRUGS (7)
  1. DOCETAXEL. [Suspect]
     Active Substance: DOCETAXEL
     Indication: BREAST CANCER FEMALE
     Dosage: 210 MG, Q3W
     Route: 042
     Dates: start: 20110518, end: 20110518
  2. 5-FLUOROURACIL [FLUOROURACIL] [Concomitant]
     Active Substance: FLUOROURACIL
     Dosage: UNK
  3. FEC [Concomitant]
     Active Substance: CYCLOPHOSPHAMIDE\EPIRUBICIN HYDROCHLORIDE\FLUOROURACIL
     Dosage: UNK
     Dates: start: 20110727, end: 20110727
  4. DOCETAXEL. [Suspect]
     Active Substance: DOCETAXEL
     Dosage: 210 MG, Q3W
     Route: 042
     Dates: start: 20110727, end: 20110727
  5. NEOSAR [Concomitant]
     Active Substance: CYCLOPHOSPHAMIDE
     Dosage: UNK
  6. ELLENCE [Concomitant]
     Active Substance: EPIRUBICIN HYDROCHLORIDE
     Dosage: UNK
  7. FEC [Concomitant]
     Active Substance: CYCLOPHOSPHAMIDE\EPIRUBICIN HYDROCHLORIDE\FLUOROURACIL
     Indication: BREAST CANCER FEMALE
     Dosage: UNK
     Dates: start: 20110518, end: 20110518

REACTIONS (1)
  - Alopecia [Recovering/Resolving]

NARRATIVE: CASE EVENT DATE: 20120127
